FAERS Safety Report 9394832 (Version 1)
Quarter: 2013Q3

REPORT INFORMATION
  Report Type: Spontaneous
  Country: US (occurrence: None)
  Receive Date: 20130709
  Receipt Date: 20130709
  Transmission Date: 20140515
  Serious: Yes (Disabling, Other)
  Sender: FDA-Public Use
  Company Number: None

PATIENT
  Age: 84 None
  Sex: Male

DRUGS (8)
  1. XARELTO? [Suspect]
     Indication: ATRIAL FIBRILLATION
     Dosage: ONCE AT BEDTIME BY MOUTH
     Route: 048
     Dates: start: 20130525, end: 20130704
  2. CALCITRIOL [Concomitant]
  3. AMLODIPINE [Concomitant]
  4. OMEPRAZOLE [Concomitant]
  5. VITAMIN C [Concomitant]
  6. VITAMIN D [Concomitant]
  7. VITAMIN B-12 [Concomitant]
  8. CENTRUM SILVER [Concomitant]

REACTIONS (4)
  - Fatigue [None]
  - Asthenia [None]
  - Dizziness [None]
  - Visual impairment [None]
